FAERS Safety Report 8088613-X (Version None)
Quarter: 2012Q1

REPORT INFORMATION
  Report Type: 
  Country: None (occurrence: None)
  Receive Date: 20120128
  Receipt Date: 20110503
  Transmission Date: 20120608
  Serious: No
  Sender: FDA-Public Use
  Company Number: US-ABBOTT-11P-163-0723320-00

PATIENT
  Age: 17 Year
  Sex: Male

DRUGS (7)
  1. ALBUTEROL [Concomitant]
     Indication: ASTHMA
     Dosage: BEFORE EXERTION
  2. HUMIRA [Suspect]
     Indication: ANKYLOSING SPONDYLITIS
     Dates: start: 20110429
  3. BENZACLIN [Concomitant]
     Indication: ACNE
     Dosage: FOR 31 DAYS; 1 IN 1 DAY
  4. IBUPROFEN [Concomitant]
     Indication: PAIN
     Dosage: AS NEEDED
  5. SOLODYN [Concomitant]
     Indication: ACNE CYSTIC
     Dosage: ER; 1 IN 1 DAY
  6. ZOVIRAX [Concomitant]
     Indication: ACNE
     Dosage: 5 TIMES A DAY FOR 5 DAYS
  7. MOBIC [Concomitant]
     Indication: ARTHRALGIA
     Dosage: IN AM

REACTIONS (2)
  - OROPHARYNGEAL PAIN [None]
  - INCREASED VISCOSITY OF BRONCHIAL SECRETION [None]
